FAERS Safety Report 21493853 (Version 7)
Quarter: 2022Q4

REPORT INFORMATION
  Report Type: Report from Study
  Country: US (occurrence: US)
  Receive Date: 20221021
  Receipt Date: 20221215
  Transmission Date: 20230112
  Serious: Yes (Death)
  Sender: FDA-Public Use
  Company Number: US-PFIZER INC-PV202200084646

PATIENT
  Age: 52 Year
  Sex: Male

DRUGS (2)
  1. TALAZOPARIB [Suspect]
     Active Substance: TALAZOPARIB
     Indication: Prostate cancer
     Dosage: 1 MG, 1X/DAY
     Route: 048
     Dates: start: 20220803, end: 20220928
  2. AXITINIB [Suspect]
     Active Substance: AXITINIB
     Indication: Prostate cancer
     Dosage: 5 MG, 2X/DAY
     Route: 048
     Dates: start: 20220803, end: 20220928

REACTIONS (1)
  - Death [Fatal]

NARRATIVE: CASE EVENT DATE: 20221012
